FAERS Safety Report 7759485-5 (Version None)
Quarter: 2011Q3

REPORT INFORMATION
  Report Type: 
  Country: None (occurrence: None)
  Receive Date: 20110915
  Receipt Date: 20110905
  Transmission Date: 20111222
  Serious: Yes (Life-Threatening)
  Sender: FDA-Public Use
  Company Number: 2011-01020

PATIENT
  Age: 63 Year
  Sex: Male

DRUGS (1)
  1. SIMVASTATIN [Suspect]
     Indication: PRODUCT USED FOR UNKNOWN INDICATION
     Dosage: UNKNOWN (UNK), UNKNOWN

REACTIONS (3)
  - RHABDOMYOLYSIS [None]
  - CONTINUOUS HAEMODIAFILTRATION [None]
  - RENAL FAILURE ACUTE [None]
